FAERS Safety Report 7507947-8 (Version None)
Quarter: 2011Q2

REPORT INFORMATION
  Report Type: 
  Country: None (occurrence: None)
  Receive Date: 20110527
  Receipt Date: 20110513
  Transmission Date: 20111010
  Serious: Yes (Other)
  Sender: FDA-Public Use
  Company Number: US-JNJFOC-20110506892

PATIENT
  Sex: Male

DRUGS (1)
  1. RISPERDAL [Suspect]
     Indication: PRODUCT USED FOR UNKNOWN INDICATION
     Route: 048

REACTIONS (7)
  - ASTHENIA [None]
  - ROAD TRAFFIC ACCIDENT [None]
  - SYNCOPE [None]
  - HALLUCINATION [None]
  - TACHYCARDIA [None]
  - ADVERSE EVENT [None]
  - RESPIRATORY DISORDER [None]
